FAERS Safety Report 5405639-2 (Version None)
Quarter: 2007Q3

REPORT INFORMATION
  Report Type: 
  Country: None (occurrence: None)
  Receive Date: 20070806
  Receipt Date: 20070727
  Transmission Date: 20080115
  Serious: Yes (Hospitalization, Other)
  Sender: FDA-Public Use
  Company Number: PHFR2007GB02293

PATIENT
  Age: 38 Year
  Sex: Male

DRUGS (2)
  1. CLOZAPINE [Suspect]
     Route: 065
     Dates: start: 20030623, end: 20070308
  2. ZAPONEX [Suspect]
     Route: 048
     Dates: start: 20070309, end: 20070628

REACTIONS (3)
  - LOWER RESPIRATORY TRACT INFECTION [None]
  - RENAL FAILURE [None]
  - RESPIRATORY DEPRESSION [None]
